FAERS Safety Report 14912992 (Version 1)
Quarter: 2018Q2

REPORT INFORMATION
  Report Type: Spontaneous
  Country: US (occurrence: US)
  Receive Date: 20180501
  Receipt Date: 20180501
  Transmission Date: 20180711
  Serious: Yes (Hospitalization)
  Sender: FDA-Public Use
  Company Number: None

PATIENT
  Age: 68 Year
  Sex: Male
  Weight: 87.1 kg

DRUGS (12)
  1. LACOSAMIDE. [Concomitant]
     Active Substance: LACOSAMIDE
  2. BACLOFEN. [Concomitant]
     Active Substance: BACLOFEN
  3. FOLIC ACID. [Concomitant]
     Active Substance: FOLIC ACID
  4. KEPPRA [Concomitant]
     Active Substance: LEVETIRACETAM
  5. PANTOPRAZOLE [Concomitant]
     Active Substance: PANTOPRAZOLE
  6. TEMODAR [Concomitant]
     Active Substance: TEMOZOLOMIDE
  7. ATORVASTATIN [Concomitant]
     Active Substance: ATORVASTATIN
  8. VITAMIN E [Concomitant]
     Active Substance: .ALPHA.-TOCOPHEROL
  9. DEXAMETHASONE. [Concomitant]
     Active Substance: DEXAMETHASONE
  10. LISINOPRIL. [Suspect]
     Active Substance: LISINOPRIL
     Indication: HYPERTENSION
     Dates: start: 20180427, end: 20180501
  11. ONDANSETRON ODT [Concomitant]
     Active Substance: ONDANSETRON
  12. NIACIN. [Concomitant]
     Active Substance: NIACIN

REACTIONS (1)
  - Lip swelling [None]

NARRATIVE: CASE EVENT DATE: 20180501
